FAERS Safety Report 6667696-5 (Version None)
Quarter: 2010Q1

REPORT INFORMATION
  Report Type: 
  Country: None (occurrence: None)
  Receive Date: 20100331
  Receipt Date: 20100315
  Transmission Date: 20100710
  Serious: Yes (Hospitalization)
  Sender: FDA-Public Use
  Company Number: 6058795

PATIENT
  Age: 83 Year
  Sex: Male

DRUGS (6)
  1. LEVOTHYROXINE SODIUM [Suspect]
     Indication: CONGENITAL HYPOTHYROIDISM
     Dosage: 1 DOSAGE FORMS (1 DOSAGE FORMS, 1 IN 1 D), ORAL, FOR SEVERAL YEARS
     Route: 048
     Dates: end: 20091110
  2. TEMODAL [Concomitant]
  3. KERLONE [Concomitant]
  4. GLUCOPHAGE [Concomitant]
  5. PRAVASTATIN [Concomitant]
  6. RIVOTRIL (CLONAZEPAM) [Concomitant]

REACTIONS (10)
  - ANGINA PECTORIS [None]
  - ATRIAL FIBRILLATION [None]
  - ELECTROCARDIOGRAM ST SEGMENT DEPRESSION [None]
  - GLIOBLASTOMA [None]
  - HEART RATE INCREASED [None]
  - HYPERTHYROIDISM [None]
  - OVERDOSE [None]
  - THROMBOCYTOPENIA [None]
  - TROPONIN INCREASED [None]
  - WEIGHT DECREASED [None]
